FAERS Safety Report 9242530 (Version 1)
Quarter: 2013Q2

REPORT INFORMATION
  Report Type: Spontaneous
  Country: US (occurrence: US)
  Receive Date: 20130419
  Receipt Date: 20130419
  Transmission Date: 20140414
  Serious: Yes (Other)
  Sender: FDA-Public Use
  Company Number: US-FRI-1000044300

PATIENT
  Age: 54 Year
  Sex: Male

DRUGS (2)
  1. CELEXA [Suspect]
     Indication: DEPRESSION
     Dosage: 20 MG
     Route: 048
  2. ZYVOX [Suspect]
     Indication: PNEUMONIA STAPHYLOCOCCAL
     Dosage: 1200 MG
     Route: 048
     Dates: start: 20130305, end: 20130326

REACTIONS (5)
  - Pneumonia staphylococcal [Recovering/Resolving]
  - Drug interaction [Recovered/Resolved]
  - Serotonin syndrome [Unknown]
  - Anxiety [Recovered/Resolved with Sequelae]
  - Agitation [Recovered/Resolved with Sequelae]
